FAERS Safety Report 4592334-5 (Version None)
Quarter: 2005Q1

REPORT INFORMATION
  Report Type: 
  Country: None (occurrence: None)
  Receive Date: 20050228
  Receipt Date: 20041210
  Transmission Date: 20050727
  Serious: No
  Sender: FDA-Public Use
  Company Number: US-BRISTOL-MYERS SQUIBB COMPANY-12791695

PATIENT
  Age: 51 Year
  Sex: Male

DRUGS (4)
  1. ABILIFY [Suspect]
     Indication: ANGER
     Route: 048
  2. ABILIFY [Suspect]
     Indication: IMPULSE-CONTROL DISORDER
     Route: 048
  3. PAXIL [Concomitant]
  4. WELLBUTRIN XL [Concomitant]

REACTIONS (2)
  - LETHARGY [None]
  - MYALGIA [None]
